FAERS Safety Report 9973347 (Version 1)
Quarter: 2014Q1

REPORT INFORMATION
  Report Type: Spontaneous
  Country: FR (occurrence: FR)
  Receive Date: 20140306
  Receipt Date: 20140306
  Transmission Date: 20141002
  Serious: Yes (Other)
  Sender: FDA-Public Use
  Company Number: FR-JNJFOC-20140300071

PATIENT
  Age: 66 Year
  Sex: Female

DRUGS (8)
  1. REMICADE [Suspect]
     Indication: PRODUCT USED FOR UNKNOWN INDICATION
     Route: 042
     Dates: start: 20130423
  2. LEVOTHYROX [Concomitant]
     Route: 065
  3. TIMOPTOL [Concomitant]
     Route: 065
  4. PARACETAMOL [Concomitant]
     Route: 065
  5. GAVISCON NOS [Concomitant]
     Route: 065
  6. INEXIUM [Concomitant]
     Route: 065
  7. AERIUS [Concomitant]
     Route: 065
  8. ATARAX [Concomitant]
     Route: 065

REACTIONS (1)
  - Rhinitis [Not Recovered/Not Resolved]
